FAERS Safety Report 5476359-3 (Version None)
Quarter: 2007Q4

REPORT INFORMATION
  Report Type: 
  Country: None (occurrence: None)
  Receive Date: 20071003
  Receipt Date: 20070926
  Transmission Date: 20080405
  Serious: Yes (Other)
  Sender: FDA-Public Use
  Company Number: US-GENENTECH-248212

PATIENT
  Sex: Female
  Weight: 65.76 kg

DRUGS (2)
  1. XOLAIR [Suspect]
     Indication: ASTHMA
     Dosage: 375 MG, Q2W
     Route: 058
     Dates: start: 20060201, end: 20070925
  2. ATROVENT [Concomitant]
     Indication: DRUG USE FOR UNKNOWN INDICATION
     Dates: start: 20070913

REACTIONS (4)
  - CHEST DISCOMFORT [None]
  - FLUSHING [None]
  - INJECTION SITE PRURITUS [None]
  - URTICARIA [None]
